FAERS Safety Report 5306198-5 (Version None)
Quarter: 2007Q2

REPORT INFORMATION
  Report Type: 
  Country: None (occurrence: None)
  Receive Date: 20070416
  Receipt Date: 20070402
  Transmission Date: 20071010
  Serious: Yes (Other)
  Sender: FDA-Public Use
  Company Number: ACO_0333_2007

PATIENT
  Sex: Female

DRUGS (1)
  1. SIRDALUD RETARD [Suspect]
     Dosage: DF PO
     Route: 048

REACTIONS (3)
  - BLOOD PRESSURE DECREASED [None]
  - MUSCLE RIGIDITY [None]
  - SYNCOPE [None]
